FAERS Safety Report 4687187-0 (Version None)
Quarter: 2005Q2

REPORT INFORMATION
  Report Type: 
  Country: None (occurrence: None)
  Receive Date: 20050606
  Receipt Date: 20050524
  Transmission Date: 20051028
  Serious: Yes (Hospitalization)
  Sender: FDA-Public Use
  Company Number: 2005079614

PATIENT
  Age: 79 Year
  Sex: Female
  Weight: 58.0604 kg

DRUGS (3)
  1. BEXTRA [Suspect]
     Indication: POST PROCEDURAL PAIN
     Dosage: ORAL
     Route: 048
     Dates: start: 20040101, end: 20041101
  2. LEVOXYL [Concomitant]
  3. METFORMIN [Concomitant]

REACTIONS (2)
  - FEAR [None]
  - KNEE ARTHROPLASTY [None]
